FAERS Safety Report 9765628 (Version 1)
Quarter: 2013Q4

REPORT INFORMATION
  Report Type: Spontaneous
  Country: US (occurrence: US)
  Receive Date: 20131217
  Receipt Date: 20131217
  Transmission Date: 20140711
  Serious: No
  Sender: FDA-Public Use
  Company Number: US-GLAXOSMITHKLINE-A1008589A

PATIENT
  Age: 61 Year
  Sex: Male
  Weight: 59 kg

DRUGS (17)
  1. VOTRIENT [Suspect]
     Indication: PRODUCT USED FOR UNKNOWN INDICATION
     Dosage: 800MG PER DAY
     Route: 048
  2. CHEMOTHERAPY [Suspect]
     Indication: PRODUCT USED FOR UNKNOWN INDICATION
     Route: 042
  3. SOMA [Concomitant]
  4. SERTRALINE [Concomitant]
  5. ZOLPIDEM [Concomitant]
  6. FENTANYL [Concomitant]
  7. ALPRAZOLAM [Concomitant]
  8. OXYCODONE [Concomitant]
  9. FLECTOR [Concomitant]
  10. ALEVE [Concomitant]
  11. ZZZQUIL [Concomitant]
  12. OXYCONTIN [Concomitant]
  13. MULTIVITAMIN [Concomitant]
  14. TYLENOL [Concomitant]
  15. HYDROCODONE [Concomitant]
  16. UNKNOWN [Concomitant]
  17. PERI-COLACE [Concomitant]

REACTIONS (6)
  - Fatigue [Unknown]
  - Vomiting [Unknown]
  - Constipation [Unknown]
  - Decreased appetite [Unknown]
  - Skin ulcer [Unknown]
  - Dizziness [Unknown]
